FAERS Safety Report 6819815-5 (Version None)
Quarter: 2010Q3

REPORT INFORMATION
  Report Type: 
  Country: None (occurrence: None)
  Receive Date: 20100707
  Receipt Date: 20100622
  Transmission Date: 20110219
  Serious: Yes (Death)
  Sender: FDA-Public Use
  Company Number: FR-GENENTECH-303523

PATIENT
  Age: 44 Year
  Sex: Male

DRUGS (27)
  1. RITUXIMAB [Suspect]
     Indication: B-CELL LYMPHOMA RECURRENT
     Dosage: UNK
     Route: 042
     Dates: start: 20071201
  2. RITUXIMAB [Suspect]
     Dosage: 375 MG, UNK
     Route: 042
     Dates: start: 20080303
  3. RITUXIMAB [Suspect]
     Dosage: 375 MG, UNK
     Route: 042
     Dates: start: 20080401
  4. RITUXIMAB [Suspect]
     Dosage: 725 MG/M2, UNK
     Route: 042
     Dates: start: 20080619
  5. RITUXIMAB [Suspect]
     Dosage: 725 MG, UNK
     Route: 042
     Dates: start: 20080731
  6. CYCLOPHOSPHAMIDE [Concomitant]
     Indication: NON-HODGKIN'S LYMPHOMA
     Dosage: UNK
  7. DEXAMETHASONE [Concomitant]
     Indication: PRODUCT USED FOR UNKNOWN INDICATION
     Dosage: 40 MG, UNK
     Dates: start: 20080303
  8. DEXAMETHASONE [Concomitant]
     Dosage: 160 MG, UNK
     Dates: start: 20080401
  9. DEXAMETHASONE [Concomitant]
     Dosage: UNK
     Dates: start: 20090601
  10. DEXAMETHASONE [Concomitant]
     Dosage: UNK
     Dates: start: 20090625
  11. CYTARABINE [Concomitant]
     Indication: PRODUCT USED FOR UNKNOWN INDICATION
     Dosage: 4 G/M2, UNK
     Dates: start: 20080303
  12. CYTARABINE [Concomitant]
     Dosage: 4 G/M2, UNK
     Dates: start: 20080401
  13. CYTARABINE [Concomitant]
     Dosage: UNK
     Dates: start: 20090625
  14. CARBOPLATIN [Concomitant]
     Indication: PRODUCT USED FOR UNKNOWN INDICATION
     Dosage: 4 UNK, UNK
     Dates: start: 20080303
  15. CARBOPLATIN [Concomitant]
     Dosage: 4 UNK, UNK
     Dates: start: 20080401
  16. CARBOPLATIN [Concomitant]
     Dosage: 5 UNK, UNK
     Dates: start: 20080619
  17. CARBOPLATIN [Concomitant]
     Dosage: 5 UNK, UNK
     Dates: start: 20080731
  18. IFOSFAMIDE [Concomitant]
     Indication: PRODUCT USED FOR UNKNOWN INDICATION
     Dosage: 5 G/M2, UNK
     Dates: start: 20080619
  19. IFOSFAMIDE [Concomitant]
     Dosage: 5 G/M2, UNK
     Dates: start: 20080731
  20. VP-16 [Concomitant]
     Indication: PRODUCT USED FOR UNKNOWN INDICATION
     Dosage: 300 MG/M2, UNK
     Dates: start: 20080619
  21. VP-16 [Concomitant]
     Dosage: 300 MG/M2, UNK
     Dates: start: 20080731
  22. FLUDARABINE [Concomitant]
     Indication: PRODUCT USED FOR UNKNOWN INDICATION
     Dosage: UNK
     Dates: start: 20090601
  23. NOVANTRONE [Concomitant]
     Indication: PRODUCT USED FOR UNKNOWN INDICATION
     Dosage: UNK
     Dates: start: 20090601
  24. NOVANTRONE [Concomitant]
     Dosage: UNK
     Dates: start: 20090625
  25. DOXORUBICIN HCL [Concomitant]
     Indication: NON-HODGKIN'S LYMPHOMA
  26. PREDNISONE [Concomitant]
     Indication: NON-HODGKIN'S LYMPHOMA
  27. VINCRISTINE [Concomitant]
     Indication: NON-HODGKIN'S LYMPHOMA

REACTIONS (2)
  - ESCHERICHIA BACTERAEMIA [None]
  - NEOPLASM MALIGNANT [None]
